FAERS Safety Report 19130848 (Version 1)
Quarter: 2021Q2

REPORT INFORMATION
  Report Type: Spontaneous
  Country: DE (occurrence: DE)
  Receive Date: 20210414
  Receipt Date: 20210414
  Transmission Date: 20210717
  Serious: Yes (Death)
  Sender: FDA-Public Use
  Company Number: DE-DRREDDYS-GER/GER/19/0115175

PATIENT
  Age: 4 Week
  Sex: Male
  Weight: 3.5 kg

DRUGS (1)
  1. CITALOPRAM [Suspect]
     Active Substance: CITALOPRAM HYDROBROMIDE
     Indication: PRODUCT USED FOR UNKNOWN INDICATION
     Route: 064

REACTIONS (5)
  - Foetal exposure during pregnancy [Unknown]
  - Hypertrophic cardiomyopathy [Fatal]
  - Heart disease congenital [Fatal]
  - Congenital hepatomegaly [Fatal]
  - Neonatal respiratory distress syndrome [Fatal]

NARRATIVE: CASE EVENT DATE: 20190915
